FAERS Safety Report 15992616 (Version 1)
Quarter: 2019Q1

REPORT INFORMATION
  Report Type: Report from Study
  Country: US (occurrence: US)
  Receive Date: 20190221
  Receipt Date: 20190221
  Transmission Date: 20190418
  Serious: Yes (Hospitalization)
  Sender: FDA-Public Use
  Company Number: US-ACTELION-A-US2018-172952

PATIENT
  Age: 65 Year
  Sex: Female

DRUGS (12)
  1. POTASSIUM [Concomitant]
     Active Substance: POTASSIUM
  2. METOPROLOL. [Concomitant]
     Active Substance: METOPROLOL
  3. HUMALOG [Concomitant]
     Active Substance: INSULIN LISPRO
  4. SOTALOL. [Concomitant]
     Active Substance: SOTALOL
  5. OPSUMIT [Suspect]
     Active Substance: MACITENTAN
     Indication: PULMONARY ARTERIAL HYPERTENSION
     Dosage: 10 MG, QD
     Route: 048
     Dates: start: 20171209
  6. SILDENAFIL. [Concomitant]
     Active Substance: SILDENAFIL
  7. LASIX [Concomitant]
     Active Substance: FUROSEMIDE
  8. TRESIBA [Concomitant]
     Active Substance: INSULIN DEGLUDEC
  9. OMEPRAZOLE. [Concomitant]
     Active Substance: OMEPRAZOLE
  10. METFORMIN [Concomitant]
     Active Substance: METFORMIN HYDROCHLORIDE
  11. ELIQUIS [Concomitant]
     Active Substance: APIXABAN
  12. SPIRONOLACTONE. [Concomitant]
     Active Substance: SPIRONOLACTONE

REACTIONS (3)
  - Pain in extremity [Not Recovered/Not Resolved]
  - Hospitalisation [Recovered/Resolved]
  - Muscle spasms [Not Recovered/Not Resolved]

NARRATIVE: CASE EVENT DATE: 20190115
